FAERS Safety Report 8403344-1 (Version None)
Quarter: 2012Q2

REPORT INFORMATION
  Report Type: 
  Country: None (occurrence: None)
  Receive Date: 20120601
  Receipt Date: 20120529
  Transmission Date: 20120825
  Serious: Yes (Death)
  Sender: FDA-Public Use
  Company Number: US-CELGENEUS-163-21880-12051243

PATIENT
  Sex: Female

DRUGS (1)
  1. REVLIMID [Suspect]
     Dosage: 10 MILLIGRAM
     Route: 048
     Dates: start: 20120413

REACTIONS (3)
  - LEUKOCYTOSIS [None]
  - CEREBROVASCULAR ACCIDENT [None]
  - MYELODYSPLASTIC SYNDROME [None]
